FAERS Safety Report 22045227 (Version 1)
Quarter: 2023Q1

REPORT INFORMATION
  Report Type: Spontaneous
  Country: US (occurrence: None)
  Receive Date: 20230227
  Receipt Date: 20230227
  Transmission Date: 20230417
  Serious: Yes (Disabling, Other)
  Sender: FDA-Public Use
  Company Number: None

PATIENT
  Age: 66 Year
  Sex: Female
  Weight: 52.65 kg

DRUGS (1)
  1. PROLIA [Suspect]
     Active Substance: DENOSUMAB

REACTIONS (5)
  - Burning sensation [None]
  - Urinary tract infection [None]
  - Irritability [None]
  - Musculoskeletal pain [None]
  - Injection site pain [None]

NARRATIVE: CASE EVENT DATE: 20220803
